FAERS Safety Report 8299225-7 (Version None)
Quarter: 2012Q2

REPORT INFORMATION
  Report Type: 
  Country: None (occurrence: None)
  Receive Date: 20120419
  Receipt Date: 20120417
  Transmission Date: 20120825
  Serious: Yes (Other)
  Sender: FDA-Public Use
  Company Number: PHHO2012DE003049

PATIENT
  Sex: Male
  Weight: 75.6 kg

DRUGS (2)
  1. FTY [Suspect]
     Indication: MULTIPLE SCLEROSIS RELAPSE
     Dosage: 0.5 MG, QD
     Route: 048
     Dates: start: 20110314, end: 20120217
  2. SYMBICORT [Concomitant]
     Indication: ASTHMA
     Dosage: 2 DF, QD
     Dates: start: 20070905

REACTIONS (1)
  - BASAL CELL CARCINOMA [None]
